FAERS Safety Report 5734001-8 (Version None)
Quarter: 2008Q2

REPORT INFORMATION
  Report Type: 
  Country: None (occurrence: None)
  Receive Date: 20080509
  Receipt Date: 20080428
  Transmission Date: 20081010
  Serious: Yes (Other)
  Sender: FDA-Public Use
  Company Number: US-ELI_LILLY_AND_COMPANY-US200804007536

PATIENT
  Age: 35 Year
  Sex: Male
  Weight: 122.45 kg

DRUGS (5)
  1. CYMBALTA [Suspect]
     Indication: BIPOLAR DISORDER
     Dosage: 30 MG, DAILY (1/D)
  2. CYMBALTA [Suspect]
     Dosage: 30 MG, DAILY (1/D)
     Dates: start: 20080421
  3. CELEXA [Concomitant]
     Dosage: 10 MG, DAILY (1/D)
  4. LORTAB [Concomitant]
  5. WELLBUTRIN [Concomitant]

REACTIONS (3)
  - CARDIAC DISORDER [None]
  - OEDEMA [None]
  - RENAL DISORDER [None]
